FAERS Safety Report 5944058-7 (Version None)
Quarter: 2008Q4

REPORT INFORMATION
  Report Type: 
  Country: None (occurrence: None)
  Receive Date: 20081106
  Receipt Date: 20081029
  Transmission Date: 20090506
  Serious: No
  Sender: FDA-Public Use
  Company Number: US-B.I. PHARMACEUTICALS,INC./RIDGEFIELD-2008-BP-15769BP

PATIENT
  Age: 74 Year
  Sex: Male

DRUGS (9)
  1. SPIRIVA [Suspect]
     Indication: DYSPNOEA
     Dosage: 1PUF
  2. PROAIR HFA [Concomitant]
     Dosage: 2PUF
  3. VICODIN [Concomitant]
  4. TUSSIONEX [Concomitant]
  5. BUMEX [Concomitant]
  6. MORPHINE SULFATE INJ [Concomitant]
     Route: 048
  7. ATARAX HYDROCORTISONE HCL [Concomitant]
     Dosage: 25MG
  8. NORVASC [Concomitant]
  9. LYRICA [Concomitant]
     Dosage: 150MG

REACTIONS (1)
  - DRUG INEFFECTIVE [None]
